FAERS Safety Report 24156609 (Version 1)
Quarter: 2024Q3

REPORT INFORMATION
  Report Type: Spontaneous
  Country: FR (occurrence: FR)
  Receive Date: 20240731
  Receipt Date: 20240731
  Transmission Date: 20241016
  Serious: Yes (Life-Threatening, Hospitalization)
  Sender: MYLAN
  Company Number: None

PATIENT
  Age: 63 Year
  Sex: Female

DRUGS (2)
  1. KETOCONAZOLE [Interacting]
     Active Substance: KETOCONAZOLE
     Indication: Skin disorder
     Dosage: 1 DOSAGE FORM, QD
     Route: 003
     Dates: start: 20240521, end: 20240531
  2. IMBRUVICA [Interacting]
     Active Substance: IBRUTINIB
     Indication: Chronic lymphocytic leukaemia
     Dosage: 140 MILLIGRAM, QD (1 DAY OUT OF 2)
     Route: 048
     Dates: start: 20220117

REACTIONS (2)
  - Agranulocytosis [Recovered/Resolved]
  - Drug interaction [Recovered/Resolved]

NARRATIVE: CASE EVENT DATE: 20240501
